FAERS Safety Report 9123846 (Version 1)
Quarter: 2013Q1

REPORT INFORMATION
  Report Type: Spontaneous
  Country: US (occurrence: US)
  Receive Date: 20130116
  Receipt Date: 20130116
  Transmission Date: 20140127
  Serious: Yes (Other)
  Sender: FDA-Public Use
  Company Number: US-PFIZER INC-2013015443

PATIENT
  Sex: Female

DRUGS (2)
  1. XANAX [Suspect]
     Dosage: UNK
  2. PRISTIQ [Suspect]
     Dosage: UNK

REACTIONS (7)
  - Drug dependence [Unknown]
  - Eye disorder [Unknown]
  - Mydriasis [Unknown]
  - Cold sweat [Unknown]
  - Hyperhidrosis [Unknown]
  - Pallor [Unknown]
  - Dizziness [Unknown]
